FAERS Safety Report 14362655 (Version 5)
Quarter: 2018Q2

REPORT INFORMATION
  Report Type: Report from Study
  Country: US (occurrence: US)
  Receive Date: 20180108
  Receipt Date: 20180417
  Transmission Date: 20180711
  Serious: Yes (Hospitalization, Other)
  Sender: FDA-Public Use
  Company Number: US-BAYER-2017-248499

PATIENT
  Age: 64 Year
  Sex: Male

DRUGS (2)
  1. NEXAVAR [Suspect]
     Active Substance: SORAFENIB
     Indication: HEPATOCELLULAR CARCINOMA
     Dosage: 200 MG, BID
     Route: 048
     Dates: start: 20171218, end: 20180129
  2. NEXAVAR [Suspect]
     Active Substance: SORAFENIB
     Indication: HEPATOCELLULAR CARCINOMA
     Dosage: 400 MG, BID
     Route: 048
     Dates: start: 20180130

REACTIONS (25)
  - Scab [None]
  - Drug dose omission [None]
  - Drug dose omission [None]
  - Cough [None]
  - Pruritus [Recovered/Resolved]
  - Blood pressure increased [Recovered/Resolved]
  - Chest pain [Recovered/Resolved]
  - Dyspnoea [None]
  - Metastases to heart [None]
  - Cough [Not Recovered/Not Resolved]
  - Nausea [Recovered/Resolved]
  - Dry mouth [Recovered/Resolved]
  - Metastasis [None]
  - Influenza like illness [None]
  - Vomiting [Not Recovered/Not Resolved]
  - Rash pruritic [Recovered/Resolved]
  - Musculoskeletal pain [Recovered/Resolved]
  - Blood pressure increased [None]
  - Sinusitis [Recovering/Resolving]
  - Exercise tolerance decreased [Not Recovered/Not Resolved]
  - Abdominal pain upper [Recovering/Resolving]
  - Off label use [None]
  - Mass [None]
  - Fall [None]
  - Headache [Recovered/Resolved]

NARRATIVE: CASE EVENT DATE: 201712
